FAERS Safety Report 12882565 (Version 1)
Quarter: 2016Q4

REPORT INFORMATION
  Report Type: Spontaneous
  Country: US (occurrence: US)
  Receive Date: 20161025
  Receipt Date: 20161025
  Transmission Date: 20170207
  Serious: No
  Sender: FDA-Public Use
  Company Number: US-PFIZER INC-2016492050

PATIENT
  Age: 90 Year
  Sex: Female
  Weight: 59.42 kg

DRUGS (3)
  1. BIOFREEZE [Concomitant]
     Active Substance: MENTHOL
     Indication: PERIPHERAL SWELLING
     Dosage: UNK UNK, 4X/DAY
     Route: 061
     Dates: start: 20161018, end: 20161020
  2. TIMOLOL. [Concomitant]
     Active Substance: TIMOLOL
     Indication: OCULAR HYPERTENSION
     Dosage: ONE DROP EACH EYE TWICE A DAY
     Dates: start: 1995
  3. DICLOFENAC EPOLAMINE [Suspect]
     Active Substance: DICLOFENAC EPOLAMINE
     Indication: PERIPHERAL SWELLING
     Dosage: ONE PATCH CUT IN HALF AND APPLIED TO LEFT LEG
     Dates: start: 20161018, end: 20161020

REACTIONS (2)
  - Drug ineffective for unapproved indication [Not Recovered/Not Resolved]
  - Intentional product misuse [Recovered/Resolved]

NARRATIVE: CASE EVENT DATE: 20161018
